FAERS Safety Report 14256352 (Version 2)
Quarter: 2017Q4

REPORT INFORMATION
  Report Type: Spontaneous
  Country: US (occurrence: US)
  Receive Date: 20171206
  Receipt Date: 20171222
  Transmission Date: 20180321
  Serious: Yes (Death)
  Sender: FDA-Public Use
  Company Number: US-MUNDIPHARMA DS AND PHARMACOVIGILANCE-USA-2016-0134213

PATIENT
  Age: 41 Year
  Sex: Female
  Weight: 72.7 kg

DRUGS (8)
  1. NUCYNTA [Suspect]
     Active Substance: TAPENTADOL HYDROCHLORIDE
     Indication: PRODUCT USED FOR UNKNOWN INDICATION
     Route: 048
  2. OXYMORPHONE [Concomitant]
     Active Substance: OXYMORPHONE
     Indication: PRODUCT USED FOR UNKNOWN INDICATION
     Route: 065
  3. MORPHINE SULFATE (SIMILAR TO NDA 19-516) [Concomitant]
     Active Substance: MORPHINE SULFATE
     Indication: PRODUCT USED FOR UNKNOWN INDICATION
     Route: 048
  4. CITALOPRAM [Concomitant]
     Active Substance: CITALOPRAM HYDROBROMIDE
     Indication: PRODUCT USED FOR UNKNOWN INDICATION
     Route: 065
  5. CLONAZEPAM. [Concomitant]
     Active Substance: CLONAZEPAM
     Indication: PRODUCT USED FOR UNKNOWN INDICATION
     Route: 048
  6. OXYCODONE HYDROCHLORIDE (SIMILAR TO NDA 22-272) [Suspect]
     Active Substance: OXYCODONE HYDROCHLORIDE
     Indication: PRODUCT USED FOR UNKNOWN INDICATION
     Route: 048
  7. ALCOHOL. [Suspect]
     Active Substance: ALCOHOL
     Indication: PRODUCT USED FOR UNKNOWN INDICATION
     Route: 048
  8. DIAZEPAM. [Suspect]
     Active Substance: DIAZEPAM
     Indication: PRODUCT USED FOR UNKNOWN INDICATION
     Route: 048

REACTIONS (3)
  - Intentional overdose [Fatal]
  - Pulmonary oedema [Fatal]
  - Pneumonia aspiration [Fatal]
